FAERS Safety Report 17097958 (Version 3)
Quarter: 2019Q4

REPORT INFORMATION
  Report Type: Spontaneous
  Country: CO (occurrence: CO)
  Receive Date: 20191202
  Receipt Date: 20191217
  Transmission Date: 20200122
  Serious: Yes (Hospitalization, Other)
  Sender: FDA-Public Use
  Company Number: CO-UNITED THERAPEUTICS-UNT-2019-016404

PATIENT

DRUGS (10)
  1. REMODULIN [Suspect]
     Active Substance: TREPROSTINIL
     Dosage: 0.028 ?G/KG, CONTINUING INFUSION RATE OF 0.024ML/H
     Route: 058
     Dates: start: 2019, end: 20191203
  2. FUROSEMIDA [Concomitant]
     Active Substance: FUROSEMIDE
     Indication: CARDIAC DISORDER
     Dosage: 40 MG, QD (EVERY 24 HRS)
     Route: 048
     Dates: start: 201703
  3. REMODULIN [Suspect]
     Active Substance: TREPROSTINIL
     Indication: PULMONARY HYPERTENSION
     Dosage: 0.024 ?G/KG, CONTINUING (INFUSION RATE: 0.040ML/H)
     Route: 058
     Dates: start: 20190219
  4. ENALAPRIL [Concomitant]
     Active Substance: ENALAPRIL
     Indication: CARDIAC DISORDER
     Dosage: 2.5 MG, QD (EVERY 24 HRS)
     Route: 048
     Dates: start: 201703
  5. SILDENAFIL. [Concomitant]
     Active Substance: SILDENAFIL
     Indication: PULMONARY HYPERTENSION
     Dosage: 25 MG, Q8H
     Route: 048
     Dates: start: 201703
  6. FUROSEMIDA [Concomitant]
     Active Substance: FUROSEMIDE
     Dosage: 20 MG, Q6H
     Route: 042
     Dates: start: 20191120
  7. SPIRONOLACTONE. [Concomitant]
     Active Substance: SPIRONOLACTONE
     Indication: CARDIAC DISORDER
     Dosage: 25 MG, QD (EVERY 24 HOURS)
     Route: 048
     Dates: start: 20191120
  8. CARVEDILOL. [Concomitant]
     Active Substance: CARVEDILOL
     Indication: CARDIAC DISORDER
     Dosage: 6.25 MG, QD (EVERY 24 HOURS)
     Route: 048
     Dates: start: 20191120
  9. REMODULIN [Suspect]
     Active Substance: TREPROSTINIL
     Indication: PULMONARY ARTERIAL HYPERTENSION
     Dosage: 0.026 ?G/KG, CONTINUING (INFUSION RATE: 0.044ML/H)
     Route: 058
     Dates: start: 2019
  10. BOSENTAN. [Concomitant]
     Active Substance: BOSENTAN
     Indication: PULMONARY HYPERTENSION
     Dosage: 125 MG, Q12H
     Route: 048
     Dates: start: 201703

REACTIONS (11)
  - Infusion site laceration [Recovered/Resolved]
  - Therapy cessation [Unknown]
  - Condition aggravated [Not Recovered/Not Resolved]
  - Catheter site pain [Recovered/Resolved]
  - Catheter site pruritus [Recovered/Resolved]
  - Cardiac failure [Not Recovered/Not Resolved]
  - Catheter site induration [Recovered/Resolved]
  - Catheter site discharge [Recovered/Resolved]
  - Catheter site erythema [Recovered/Resolved]
  - Catheter site injury [Recovered/Resolved]
  - Catheter site haematoma [Recovered/Resolved]

NARRATIVE: CASE EVENT DATE: 201909
